FAERS Safety Report 22641424 (Version 1)
Quarter: 2023Q2

REPORT INFORMATION
  Report Type: Other
  Country: JP (occurrence: JP)
  Receive Date: 20230626
  Receipt Date: 20230626
  Transmission Date: 20230721
  Serious: Yes (Life-Threatening, Hospitalization)
  Sender: FDA-Public Use
  Company Number: JP-ROCHE-2567004

PATIENT
  Age: 62 Year
  Sex: Male
  Weight: 54 kg

DRUGS (72)
  1. MYCOPHENOLATE MOFETIL [Suspect]
     Active Substance: MYCOPHENOLATE MOFETIL
     Indication: Prophylaxis against transplant rejection
     Route: 048
     Dates: start: 20181030, end: 20181126
  2. RITUXIMAB [Suspect]
     Active Substance: RITUXIMAB
     Indication: Prophylaxis against transplant rejection
     Route: 041
     Dates: start: 20180914, end: 20180914
  3. PREDNISOLONE [Suspect]
     Active Substance: PREDNISOLONE
     Indication: Prophylaxis against transplant rejection
     Route: 048
     Dates: start: 20181015, end: 20181020
  4. PREDNISOLONE [Suspect]
     Active Substance: PREDNISOLONE
     Route: 048
     Dates: start: 20181030, end: 20181112
  5. PREDNISOLONE [Suspect]
     Active Substance: PREDNISOLONE
     Route: 048
     Dates: start: 20181113, end: 20181204
  6. PREDNISOLONE [Suspect]
     Active Substance: PREDNISOLONE
     Route: 048
     Dates: start: 20181205, end: 20181210
  7. PREDNISOLONE [Suspect]
     Active Substance: PREDNISOLONE
     Route: 048
     Dates: start: 20181211, end: 20190424
  8. PREDNISOLONE [Suspect]
     Active Substance: PREDNISOLONE
     Route: 048
     Dates: start: 20190425, end: 20190501
  9. PREDNISOLONE [Suspect]
     Active Substance: PREDNISOLONE
     Route: 048
     Dates: start: 20190502, end: 20190508
  10. PREDNISOLONE [Suspect]
     Active Substance: PREDNISOLONE
     Route: 048
     Dates: start: 20190509, end: 20190515
  11. PREDNISOLONE [Suspect]
     Active Substance: PREDNISOLONE
     Route: 048
     Dates: start: 20190516, end: 20190522
  12. TACROLIMUS [Suspect]
     Active Substance: TACROLIMUS
     Indication: Prophylaxis against transplant rejection
     Dosage: 11.3 NG/ML
     Route: 048
     Dates: start: 20181023, end: 20181102
  13. TACROLIMUS [Suspect]
     Active Substance: TACROLIMUS
     Dosage: 10.7 NG/ML
     Route: 048
     Dates: start: 20181103, end: 20181209
  14. TACROLIMUS [Suspect]
     Active Substance: TACROLIMUS
     Dosage: 8.7 NG/ML
     Route: 048
     Dates: start: 20181210, end: 20190103
  15. TACROLIMUS [Suspect]
     Active Substance: TACROLIMUS
     Dosage: 6.7 NG/ML
     Route: 048
     Dates: start: 20190104, end: 20190227
  16. TACROLIMUS [Suspect]
     Active Substance: TACROLIMUS
     Dosage: 3.8 NG/ML
     Route: 048
     Dates: start: 20190228, end: 20190304
  17. TACROLIMUS [Suspect]
     Active Substance: TACROLIMUS
     Dosage: 3.2 NG/ML
     Route: 048
     Dates: start: 20190305, end: 20190308
  18. TACROLIMUS [Suspect]
     Active Substance: TACROLIMUS
     Dosage: 4.7 NG/ML
     Route: 048
     Dates: start: 20190309, end: 20190313
  19. TACROLIMUS [Suspect]
     Active Substance: TACROLIMUS
     Dosage: 5.3 NG/ML
     Route: 048
     Dates: start: 20190314, end: 20190314
  20. TACROLIMUS [Suspect]
     Active Substance: TACROLIMUS
     Dosage: 3.1 NG/ML
     Route: 048
     Dates: start: 20190315, end: 20190315
  21. TACROLIMUS [Suspect]
     Active Substance: TACROLIMUS
     Dosage: 3.2 NG/ML
     Route: 048
     Dates: start: 20190316, end: 20190316
  22. TACROLIMUS [Suspect]
     Active Substance: TACROLIMUS
     Dosage: 3.8 NG/ML
     Route: 048
     Dates: start: 20190317, end: 20190317
  23. TACROLIMUS [Suspect]
     Active Substance: TACROLIMUS
     Dosage: 4.1 NG/ML
     Route: 048
     Dates: start: 20190318, end: 20190318
  24. TACROLIMUS [Suspect]
     Active Substance: TACROLIMUS
     Dosage: 3.9 NG/ML
     Route: 048
     Dates: start: 20190319, end: 20190319
  25. TACROLIMUS [Suspect]
     Active Substance: TACROLIMUS
     Dosage: 3.0 NG/ML
     Route: 048
     Dates: start: 20190320, end: 20190327
  26. TACROLIMUS [Suspect]
     Active Substance: TACROLIMUS
     Dosage: 3.6 NG/ML
     Route: 048
     Dates: start: 20190328, end: 20190424
  27. TACROLIMUS [Suspect]
     Active Substance: TACROLIMUS
     Dosage: 4.6 NG/ML
     Route: 048
     Dates: start: 20190425, end: 20190529
  28. TACROLIMUS [Suspect]
     Active Substance: TACROLIMUS
     Dosage: 4.5 NG/ML
     Route: 048
     Dates: start: 20190530, end: 20190626
  29. TACROLIMUS [Suspect]
     Active Substance: TACROLIMUS
     Dosage: 4.9 NG/ML
     Route: 048
     Dates: start: 20190627, end: 20190731
  30. TACROLIMUS [Suspect]
     Active Substance: TACROLIMUS
     Dosage: 4.2 NG/ML
     Route: 048
     Dates: start: 20190801, end: 20190918
  31. TACROLIMUS [Suspect]
     Active Substance: TACROLIMUS
     Dosage: 3.8 NG/ML
     Route: 048
     Dates: start: 20190919, end: 20191211
  32. TACROLIMUS [Suspect]
     Active Substance: TACROLIMUS
     Dosage: 5.9 NG/ML
     Route: 048
     Dates: start: 20191212, end: 20200212
  33. TACROLIMUS [Suspect]
     Active Substance: TACROLIMUS
     Dosage: 4.5 NG/ML
     Route: 048
     Dates: start: 20200213, end: 20200513
  34. TACROLIMUS [Suspect]
     Active Substance: TACROLIMUS
     Dosage: 3.6 NG/ML
     Route: 048
     Dates: start: 20200514, end: 20200715
  35. TACROLIMUS [Suspect]
     Active Substance: TACROLIMUS
     Dosage: 3.5 NG/ML
     Route: 048
     Dates: start: 20200716, end: 20201007
  36. TACROLIMUS [Suspect]
     Active Substance: TACROLIMUS
     Dosage: 1.3 NG/ML
     Route: 048
     Dates: start: 20201008, end: 20201104
  37. TACROLIMUS [Suspect]
     Active Substance: TACROLIMUS
     Dosage: 1.5 NG/ML
     Route: 048
     Dates: start: 20201105, end: 20201216
  38. TACROLIMUS [Suspect]
     Active Substance: TACROLIMUS
     Dosage: 1.5 NG/ML
     Route: 048
     Dates: start: 20201217, end: 20210120
  39. TACROLIMUS [Suspect]
     Active Substance: TACROLIMUS
     Dosage: 1.4 NG/ML
     Route: 048
     Dates: start: 20210121, end: 20210317
  40. TACROLIMUS [Suspect]
     Active Substance: TACROLIMUS
     Dosage: 2.1 NG/ML
     Route: 048
     Dates: start: 20210318, end: 20210330
  41. TACROLIMUS [Suspect]
     Active Substance: TACROLIMUS
     Dosage: 1.2 NG/ML
     Route: 048
     Dates: start: 20210331, end: 20210401
  42. TACROLIMUS [Suspect]
     Active Substance: TACROLIMUS
     Dosage: 0.6 NG/ML
     Route: 048
     Dates: start: 20210402, end: 20210402
  43. TACROLIMUS [Suspect]
     Active Substance: TACROLIMUS
     Dosage: 1.0 NG/ML
     Route: 048
     Dates: start: 20210403, end: 20210404
  44. TACROLIMUS [Suspect]
     Active Substance: TACROLIMUS
     Dosage: 1.1 NG/ML
     Route: 048
     Dates: start: 20210405, end: 20210405
  45. TACROLIMUS [Suspect]
     Active Substance: TACROLIMUS
     Dosage: 0.9 NG/ML
     Route: 048
     Dates: start: 20210406, end: 20210408
  46. TACROLIMUS [Suspect]
     Active Substance: TACROLIMUS
     Dosage: 1.2 NG/ML
     Route: 048
     Dates: start: 20210409, end: 20210411
  47. TACROLIMUS [Suspect]
     Active Substance: TACROLIMUS
     Dosage: 1.3 NG/ML
     Route: 048
     Dates: start: 20210412, end: 20210413
  48. TACROLIMUS [Suspect]
     Active Substance: TACROLIMUS
     Dosage: 0.9 NG/ML
     Route: 048
     Dates: start: 20210414, end: 20210811
  49. TACROLIMUS [Suspect]
     Active Substance: TACROLIMUS
     Dosage: 1.2 NG/ML
     Route: 048
     Dates: start: 20210812, end: 20210818
  50. TACROLIMUS [Suspect]
     Active Substance: TACROLIMUS
     Dosage: 1.3 NG/ML
     Route: 048
     Dates: start: 20210819, end: 20211020
  51. TACROLIMUS [Suspect]
     Active Substance: TACROLIMUS
     Dosage: 0.5 NG/ML
     Route: 048
     Dates: start: 20211021, end: 20220119
  52. TACROLIMUS [Suspect]
     Active Substance: TACROLIMUS
     Dosage: 0.5 NG/ML
     Route: 048
     Dates: start: 20220120, end: 20220406
  53. EVEROLIMUS [Suspect]
     Active Substance: EVEROLIMUS
     Indication: Prophylaxis against transplant rejection
     Dosage: 2.0MG/DAY
     Route: 065
     Dates: start: 20190108
  54. GABEXATE MESYLATE [Concomitant]
     Active Substance: GABEXATE MESYLATE
     Route: 042
     Dates: start: 20181022, end: 20181105
  55. AMPHOTERICIN B [Concomitant]
     Active Substance: AMPHOTERICIN B
     Indication: Infection prophylaxis
     Route: 048
     Dates: start: 20181015, end: 20190123
  56. FUNGIZONE [Concomitant]
     Active Substance: AMPHOTERICIN B
     Indication: Infection prophylaxis
     Dosage: DOSE INTERVAL UNCERTAINTY
     Route: 048
     Dates: start: 20181015, end: 20190106
  57. VONOPRAZAN FUMARATE [Concomitant]
     Active Substance: VONOPRAZAN FUMARATE
     Indication: Prophylaxis
     Route: 048
     Dates: end: 20181202
  58. URSO [Concomitant]
     Active Substance: URSODIOL
     Indication: Hepatic cirrhosis
     Route: 048
     Dates: end: 20181024
  59. URSO [Concomitant]
     Active Substance: URSODIOL
     Route: 048
     Dates: start: 20181023
  60. NEXIUM [Concomitant]
     Active Substance: ESOMEPRAZOLE MAGNESIUM
     Indication: Prophylaxis
     Route: 048
     Dates: start: 20181203
  61. NEXIUM [Concomitant]
     Active Substance: ESOMEPRAZOLE MAGNESIUM
     Route: 048
  62. ELIQUIS [Concomitant]
     Active Substance: APIXABAN
     Indication: Splenic vein thrombosis
     Route: 048
     Dates: start: 20181110, end: 20210329
  63. LEVOCARNITINE [Concomitant]
     Active Substance: LEVOCARNITINE
     Dosage: 4 SACHETS/DAY
     Route: 048
     Dates: start: 20181023
  64. ALPROSTADIL ALFADEX [Concomitant]
     Active Substance: ALPROSTADIL ALFADEX
     Route: 042
     Dates: start: 20181022, end: 20181105
  65. DIPHENHYDRAMINE [Concomitant]
     Active Substance: DIPHENHYDRAMINE
     Indication: Premedication
     Route: 048
     Dates: start: 20180914, end: 20180914
  66. ACETAMINOPHEN [Concomitant]
     Active Substance: ACETAMINOPHEN
     Indication: Premedication
     Route: 048
     Dates: start: 20180914, end: 20180914
  67. METHYLPREDNISOLONE SODIUM SUCCINATE [Concomitant]
     Active Substance: METHYLPREDNISOLONE SODIUM SUCCINATE
     Route: 042
     Dates: start: 20181022, end: 20181025
  68. METHYLPREDNISOLONE SODIUM SUCCINATE [Concomitant]
     Active Substance: METHYLPREDNISOLONE SODIUM SUCCINATE
     Route: 042
     Dates: start: 20181026, end: 20181029
  69. METHYLPREDNISOLONE SODIUM SUCCINATE [Concomitant]
     Active Substance: METHYLPREDNISOLONE SODIUM SUCCINATE
     Route: 042
     Dates: start: 20181022, end: 20181029
  70. ALPROSTADIL ALFADEX [Concomitant]
     Active Substance: ALPROSTADIL ALFADEX
     Route: 042
     Dates: start: 20181022, end: 20181105
  71. CERTICAN [Concomitant]
     Active Substance: EVEROLIMUS
     Route: 048
     Dates: start: 20190104
  72. CERTICAN [Concomitant]
     Active Substance: EVEROLIMUS
     Route: 048
     Dates: start: 20190108

REACTIONS (3)
  - Cytomegalovirus test positive [Recovering/Resolving]
  - Splenic vein thrombosis [Recovered/Resolved]
  - Intra-abdominal haemorrhage [Recovering/Resolving]

NARRATIVE: CASE EVENT DATE: 20181108
